FAERS Safety Report 18249452 (Version 4)
Quarter: 2021Q2

REPORT INFORMATION
  Report Type: Spontaneous
  Country: US (occurrence: US)
  Receive Date: 20200910
  Receipt Date: 20210624
  Transmission Date: 20210717
  Serious: No
  Sender: FDA-Public Use
  Company Number: US-DECIPHERA PHARMACEUTICALS LLC-2020-US-000379

PATIENT
  Sex: Female

DRUGS (3)
  1. QINLOCK [Suspect]
     Active Substance: RIPRETINIB
     Dosage: 150 MILLIGRAM, QD
     Route: 048
  2. QINLOCK [Suspect]
     Active Substance: RIPRETINIB
     Indication: GASTROINTESTINAL STROMAL TUMOUR
     Dosage: 150 MILLIGRAM, QD
     Route: 048
     Dates: start: 202003
  3. QINLOCK [Suspect]
     Active Substance: RIPRETINIB
     Dosage: 150 MILLIGRAM, BID
     Route: 048

REACTIONS (16)
  - Alopecia [Unknown]
  - Headache [Unknown]
  - Therapeutic response unexpected [Unknown]
  - Sensitive skin [Unknown]
  - Dry skin [Unknown]
  - Asthenia [Unknown]
  - Drug ineffective [Unknown]
  - Hair texture abnormal [Unknown]
  - Blood pressure increased [Unknown]
  - Pruritus [Unknown]
  - Neoplasm progression [Unknown]
  - Nausea [Unknown]
  - Overdose [Unknown]
  - Abdominal pain [Unknown]
  - Hair colour changes [Unknown]
  - Somnolence [Unknown]
